FAERS Safety Report 10767202 (Version 3)
Quarter: 2015Q2

REPORT INFORMATION
  Report Type: Spontaneous
  Country: IL (occurrence: IL)
  Receive Date: 20150205
  Receipt Date: 20150429
  Transmission Date: 20150821
  Serious: Yes (Other)
  Sender: FDA-Public Use
  Company Number: IL-PFIZER INC-2014303176

PATIENT
  Age: 54 Year
  Sex: Female

DRUGS (7)
  1. SUTENT [Suspect]
     Active Substance: SUNITINIB MALATE
     Dosage: 50 MG, 2 DAYS ON / 1 DAY OFF, CYCLE NUMBER 1
     Route: 048
     Dates: end: 20141205
  2. SUTENT [Suspect]
     Active Substance: SUNITINIB MALATE
     Indication: RENAL CELL CARCINOMA
     Dosage: 50 MG, 1X/DAY, CYCLE 1
     Route: 048
     Dates: start: 20141026, end: 20141031
  3. SUTENT [Suspect]
     Active Substance: SUNITINIB MALATE
     Dosage: UNK
  4. VALTREX [Concomitant]
     Active Substance: VALACYCLOVIR HYDROCHLORIDE
     Dosage: UNK
  5. OPTALGIN [Concomitant]
     Active Substance: METAMIZOLE
     Indication: MIGRAINE
  6. VENTOLIN [Concomitant]
     Active Substance: ALBUTEROL SULFATE
     Dosage: UNK
  7. ROKACET [Concomitant]
     Dosage: UNK

REACTIONS (12)
  - Haemoglobin decreased [Recovering/Resolving]
  - Noninfective gingivitis [Recovering/Resolving]
  - Oral pain [Not Recovered/Not Resolved]
  - Decreased appetite [Not Recovered/Not Resolved]
  - Asthenia [Not Recovered/Not Resolved]
  - Abdominal pain [Not Recovered/Not Resolved]
  - Constipation [Not Recovered/Not Resolved]
  - Postoperative wound infection [Not Recovered/Not Resolved]
  - Headache [Unknown]
  - Blood pressure increased [Unknown]
  - Disease progression [Unknown]
  - Renal cell carcinoma [Unknown]

NARRATIVE: CASE EVENT DATE: 2014
